FAERS Safety Report 20157351 (Version 2)
Quarter: 2022Q1

REPORT INFORMATION
  Report Type: Spontaneous
  Country: US (occurrence: US)
  Receive Date: 20211207
  Receipt Date: 20220211
  Transmission Date: 20220423
  Serious: Yes (Other)
  Sender: FDA-Public Use
  Company Number: US-FERRINGPH-2021FE02997

PATIENT
  Age: 38 Year
  Sex: Female

DRUGS (15)
  1. MENOPUR [Suspect]
     Active Substance: FOLLITROPIN\LUTEINIZING HORMONE
     Indication: Assisted reproductive technology
     Dosage: 2 POWDERS DAILY
     Route: 065
     Dates: start: 20201023, end: 20201103
  2. NOVAREL [Suspect]
     Active Substance: CHORIOGONADOTROPIN ALFA
     Indication: Assisted reproductive technology
     Dosage: UNK
     Route: 065
  3. CETROTIDE [Suspect]
     Active Substance: CETRORELIX ACETATE
     Indication: Assisted reproductive technology
     Dosage: UNK
     Route: 065
     Dates: start: 202010, end: 20201103
  4. CETROTIDE [Suspect]
     Active Substance: CETRORELIX ACETATE
     Dosage: UNK
     Route: 065
     Dates: start: 20200215
  5. GONAL-F [Suspect]
     Active Substance: FOLLITROPIN
     Indication: Assisted reproductive technology
     Dosage: 225 DF, DAILY
     Route: 065
     Dates: start: 20201023, end: 20201103
  6. GONAL-F [Suspect]
     Active Substance: FOLLITROPIN
     Dosage: 300 DF, DAILY
     Route: 065
     Dates: start: 20200210
  7. OMNITROPE [Suspect]
     Active Substance: SOMATROPIN
     Indication: Assisted reproductive technology
     Dosage: UNK
     Route: 065
  8. GONADOTROPHIN, CHORIONIC [Suspect]
     Active Substance: GONADOTROPHIN, CHORIONIC
     Indication: Assisted reproductive technology
     Dosage: UNK
     Route: 065
     Dates: start: 20200210, end: 20201103
  9. OVIDREL [Suspect]
     Active Substance: CHORIOGONADOTROPIN ALFA
     Indication: Assisted reproductive technology
     Dosage: UNK
     Route: 065
     Dates: start: 20201226
  10. ASPIRIN [Concomitant]
     Active Substance: ASPIRIN
     Indication: Product used for unknown indication
     Dosage: 81 MG, DAILY
     Route: 065
     Dates: start: 20201023
  11. ASPIRIN [Concomitant]
     Active Substance: ASPIRIN
     Dosage: 81 MG, DAILY
     Route: 065
     Dates: start: 20200210
  12. MINERALS\VITAMINS [Concomitant]
     Active Substance: MINERALS\VITAMINS
     Indication: Product used for unknown indication
     Dosage: UNK
     Route: 065
  13. LETROZOLE [Concomitant]
     Active Substance: LETROZOLE
     Indication: Product used for unknown indication
     Dosage: UNK
     Route: 065
     Dates: start: 202101
  14. LETROZOLE [Concomitant]
     Active Substance: LETROZOLE
     Dosage: 3 DF, DAILY
     Dates: start: 20201217
  15. UNSPECIFIED INGREDIENT [Concomitant]
     Active Substance: UNSPECIFIED INGREDIENT
     Indication: Assisted reproductive technology
     Dosage: UNK
     Route: 065
     Dates: start: 20200119, end: 20200205

REACTIONS (1)
  - Abortion spontaneous [Recovered/Resolved]

NARRATIVE: CASE EVENT DATE: 20210422
